FAERS Safety Report 11822599 (Version 1)
Quarter: 2015Q4

REPORT INFORMATION
  Report Type: Spontaneous
  Country: US (occurrence: US)
  Receive Date: 20151210
  Receipt Date: 20151210
  Transmission Date: 20160305
  Serious: No
  Sender: FDA-Public Use
  Company Number: US-JNJFOC-20150515428

PATIENT
  Age: 73 Year
  Sex: Female

DRUGS (8)
  1. ASPIRIN. [Concomitant]
     Active Substance: ASPIRIN
  2. IMBRUVICA [Suspect]
     Active Substance: IBRUTINIB
     Indication: CHRONIC LYMPHOCYTIC LEUKAEMIA
     Route: 048
     Dates: start: 20140726
  3. RAMIPRIL. [Concomitant]
     Active Substance: RAMIPRIL
  4. CALCIUM [Concomitant]
     Active Substance: CALCIUM
  5. ZOCOR [Concomitant]
     Active Substance: SIMVASTATIN
  6. ACTONEL [Concomitant]
     Active Substance: RISEDRONATE SODIUM
  7. MULTIVITAMINS [Concomitant]
     Active Substance: VITAMINS
  8. FISH OIL [Concomitant]
     Active Substance: FISH OIL

REACTIONS (2)
  - Haematoma [Recovering/Resolving]
  - Fall [Unknown]

NARRATIVE: CASE EVENT DATE: 20150406
